FAERS Safety Report 6451642-3 (Version None)
Quarter: 2009Q4

REPORT INFORMATION
  Report Type: 
  Country: None (occurrence: None)
  Receive Date: 20091123
  Receipt Date: 20091013
  Transmission Date: 20100525
  Serious: Yes (Other)
  Sender: FDA-Public Use
  Company Number: US-BAXTER-2009BH011458

PATIENT
  Sex: Male
  Weight: 2 kg

DRUGS (6)
  1. HEPARIN SODIUM INJECTION [Suspect]
     Indication: DRUG EXPOSURE DURING PREGNANCY
     Route: 058
     Dates: start: 20071101, end: 20080205
  2. HEPARIN SODIUM INJECTION [Suspect]
     Route: 058
     Dates: start: 20080205, end: 20080208
  3. HEPARIN SODIUM INJECTION [Suspect]
     Route: 058
     Dates: start: 20080209, end: 20080201
  4. HEPARIN SODIUM INJECTION [Suspect]
     Route: 058
     Dates: start: 20071101, end: 20080201
  5. HEPARIN SODIUM INJECTION [Suspect]
     Route: 058
     Dates: start: 20080205, end: 20080208
  6. HEPARIN SODIUM INJECTION [Suspect]
     Route: 058
     Dates: start: 20080209, end: 20080201

REACTIONS (12)
  - ADRENAL HAEMORRHAGE [None]
  - CALCINOSIS [None]
  - DEVELOPMENTAL DELAY [None]
  - DRUG EXPOSURE DURING PREGNANCY [None]
  - HEART RATE DECREASED [None]
  - HYPERHIDROSIS [None]
  - HYPOTHYROIDISM [None]
  - JAUNDICE [None]
  - NEPHROCALCINOSIS [None]
  - PREMATURE BABY [None]
  - RENAL IMPAIRMENT [None]
  - THYROID DISORDER [None]
